FAERS Safety Report 9308283 (Version 2)
Quarter: 2013Q2

REPORT INFORMATION
  Report Type: Report from Study
  Country: JP (occurrence: JP)
  Receive Date: 20130524
  Receipt Date: 20130617
  Transmission Date: 20140414
  Serious: Yes (Hospitalization)
  Sender: FDA-Public Use
  Company Number: JP-ASTRAZENECA-2013SE35508

PATIENT
  Age: 28490 Day
  Sex: Male

DRUGS (11)
  1. AZD6140 [Suspect]
     Indication: CORONARY ARTERY DISEASE
     Route: 048
     Dates: start: 20120111
  2. LIVALO [Concomitant]
     Indication: DYSLIPIDAEMIA
     Route: 048
  3. NU-LOTAN [Concomitant]
     Indication: HYPERTENSION
     Route: 048
  4. NICORANDIL [Concomitant]
     Indication: CORONARY ARTERY DISEASE
     Route: 048
  5. ARTIST [Concomitant]
     Indication: MYOCARDIAL INFARCTION
     Route: 048
  6. PARIET [Concomitant]
     Indication: PROPHYLAXIS AGAINST GASTROINTESTINAL ULCER
     Route: 048
  7. RIBALL [Concomitant]
     Indication: HYPERURICAEMIA
     Route: 048
     Dates: start: 20120308
  8. ASA [Concomitant]
     Route: 048
  9. ARASENA-A [Concomitant]
     Indication: HERPES VIRUS INFECTION
     Route: 050
     Dates: start: 20121116
  10. VIBRAMYCIN [Concomitant]
     Indication: HERPES VIRUS INFECTION
     Route: 048
     Dates: start: 20121119
  11. KARY UNI OPHTHALMIC SUSPENSION [Concomitant]
     Indication: CATARACT
     Route: 050

REACTIONS (1)
  - Periodontitis [Recovered/Resolved]
